FAERS Safety Report 13581057 (Version 1)
Quarter: 2017Q2

REPORT INFORMATION
  Report Type: Spontaneous
  Country: US (occurrence: US)
  Receive Date: 20170525
  Receipt Date: 20170525
  Transmission Date: 20170830
  Serious: Yes (Other)
  Sender: FDA-Public Use
  Company Number: None

PATIENT
  Age: 59 Year
  Sex: Female
  Weight: 69.75 kg

DRUGS (5)
  1. IRON [Concomitant]
     Active Substance: IRON
  2. VITAMIN B12 [Concomitant]
     Active Substance: CYANOCOBALAMIN
  3. FISH OIL [Concomitant]
     Active Substance: FISH OIL
  4. CALCIUM WITH D [Concomitant]
     Active Substance: CALCIUM\VITAMIN D
  5. COPAXONE [Suspect]
     Active Substance: GLATIRAMER ACETATE
     Indication: MULTIPLE SCLEROSIS
     Dosage: ?          QUANTITY:1 INJECTION(S);OTHER FREQUENCY:THREE TIMES A WEEK;?
     Route: 058

REACTIONS (11)
  - Feeling hot [None]
  - Somnolence [None]
  - Urticaria [None]
  - Chest discomfort [None]
  - Paraesthesia [None]
  - Proctalgia [None]
  - Fatigue [None]
  - Balance disorder [None]
  - Chills [None]
  - Pain [None]
  - Pruritus [None]

NARRATIVE: CASE EVENT DATE: 20170524
